FAERS Safety Report 8822617 (Version 2)
Quarter: 2012Q4

REPORT INFORMATION
  Report Type: 
  Country: BR (occurrence: BR)
  Receive Date: 20121003
  Receipt Date: 20121012
  Transmission Date: 20130627
  Serious: Yes (Hospitalization)
  Sender: FDA-Public Use
  Company Number: BR-ABBOTT-12P-020-0986993-00

PATIENT
  Age: 56 None
  Sex: Female
  Weight: 55 kg

DRUGS (5)
  1. DEPAKOTE [Suspect]
     Indication: BIPOLAR DISORDER
     Route: 048
     Dates: start: 2007
  2. DEPAKOTE [Suspect]
     Dosage: 1.5 tablet daily At night
     Route: 048
     Dates: start: 200612
  3. TEGRETOL [Concomitant]
     Indication: BIPOLAR DISORDER
     Dosage: In the morning/at night
     Route: 048
     Dates: end: 200710
  4. UNSPECIFIED DRUG (NON-ABBOTT) [Concomitant]
     Indication: RHINITIS ALLERGIC
  5. UNSPECIFIED ORTHOMOLECULAR DRUG (NON-ABBOTT) [Concomitant]
     Indication: GASTROINTESTINAL DISORDER

REACTIONS (21)
  - Crying [Recovered/Resolved]
  - Hypophagia [Recovered/Resolved]
  - Drug dose omission [Recovered/Resolved]
  - Bipolar disorder [Recovered/Resolved]
  - Nausea [Recovered/Resolved]
  - Dysgeusia [Recovered/Resolved]
  - Dyspepsia [Recovered/Resolved]
  - Feeling abnormal [Recovered/Resolved]
  - Malaise [Recovered/Resolved]
  - Gastrointestinal disorder [Recovered/Resolved]
  - Tremor [Not Recovered/Not Resolved]
  - Vomiting [Recovered/Resolved]
  - Dizziness [Recovered/Resolved]
  - Constipation [Recovered/Resolved]
  - Unevaluable event [Recovered/Resolved]
  - Depressed mood [Recovered/Resolved]
  - Major depression [Recovered/Resolved]
  - Insomnia [Recovered/Resolved]
  - Vomiting [Recovered/Resolved]
  - Gastric disorder [Unknown]
  - Nasal dryness [Unknown]
